FAERS Safety Report 7248239-4 (Version None)
Quarter: 2011Q1

REPORT INFORMATION
  Report Type: 
  Country: None (occurrence: None)
  Receive Date: 20110127
  Receipt Date: 20110124
  Transmission Date: 20110831
  Serious: Yes (Hospitalization)
  Sender: FDA-Public Use
  Company Number: US-JNJFOC-20100501932

PATIENT
  Sex: Male
  Weight: 20.41 kg

DRUGS (8)
  1. CHILDREN'S MOTRIN [Suspect]
     Route: 048
  2. CHILDREN'S TYLENOL SUSPENSION [Suspect]
     Route: 048
  3. CHILDREN'S MOTRIN [Suspect]
     Indication: PRODUCT USED FOR UNKNOWN INDICATION
     Route: 048
  4. CHILDREN'S TYLENOL SUSPENSION [Suspect]
     Indication: PRODUCT USED FOR UNKNOWN INDICATION
     Route: 048
  5. CHILDREN'S MOTRIN [Suspect]
     Indication: PRODUCT USED FOR UNKNOWN INDICATION
     Route: 048
  6. CHILDREN'S MOTRIN [Suspect]
     Route: 048
  7. CHILDREN'S TYLENOL SUSPENSION [Suspect]
     Indication: EAR INFECTION
     Dosage: 1 1/2 TEASPOON EVERY 4 HOURS
     Route: 048
  8. CHILDREN'S TYLENOL SUSPENSION [Suspect]
     Route: 048

REACTIONS (5)
  - JOINT SWELLING [None]
  - ERYTHEMA [None]
  - PRODUCT QUALITY ISSUE [None]
  - EAR INFECTION [None]
  - URTICARIA [None]
